FAERS Safety Report 18406439 (Version 3)
Quarter: 2020Q4

REPORT INFORMATION
  Report Type: Report from Study
  Country: BR (occurrence: BR)
  Receive Date: 20201020
  Receipt Date: 20201204
  Transmission Date: 20210114
  Serious: Yes (Death, Other)
  Sender: FDA-Public Use
  Company Number: BR-UCBSA-2020040669

PATIENT
  Age: 73 Year
  Sex: Female
  Weight: 65 kg

DRUGS (2)
  1. CERTOLIZUMAB PEGOL RA [Suspect]
     Active Substance: CERTOLIZUMAB PEGOL
     Indication: RHEUMATOID ARTHRITIS
     Dosage: 400 MILLIGRAM, EV 4 WEEKS
     Route: 058
     Dates: start: 202009
  2. LEVOFLOXACINO [LEVOFLOXACIN] [Concomitant]
     Active Substance: LEVOFLOXACIN
     Indication: PNEUMONIA
     Dosage: 750 MILLIGRAM, ONCE DAILY (QD)
     Route: 048

REACTIONS (3)
  - Bacterial infection [Unknown]
  - Pneumonia [Not Recovered/Not Resolved]
  - COVID-19 [Fatal]

NARRATIVE: CASE EVENT DATE: 202010
